FAERS Safety Report 10266492 (Version 1)
Quarter: 2014Q2

REPORT INFORMATION
  Report Type: Spontaneous
  Country: US (occurrence: None)
  Receive Date: 20140625
  Receipt Date: 20140625
  Transmission Date: 20141212
  Serious: Yes (Disabling)
  Sender: FDA-Public Use
  Company Number: None

PATIENT
  Age: 28 Year
  Sex: Female
  Weight: 61.24 kg

DRUGS (1)
  1. LOESTRIN 24 FE 1MG/20MCG WARNER CHILCOTT [Suspect]
     Indication: CONTRACEPTION
     Dosage: 1 PILL, ONCE DAILY, TAKEN BY MOUTH
     Route: 048
     Dates: start: 20110721, end: 20110915

REACTIONS (7)
  - Coital bleeding [None]
  - Uterine leiomyoma [None]
  - Metrorrhagia [None]
  - Bacterial vaginosis [None]
  - Vulvovaginal mycotic infection [None]
  - Feeling abnormal [None]
  - Dyspareunia [None]
